FAERS Safety Report 5084354-1 (Version None)
Quarter: 2006Q3

REPORT INFORMATION
  Report Type: 
  Country: None (occurrence: None)
  Receive Date: 20060821
  Receipt Date: 20060807
  Transmission Date: 20061208
  Serious: Yes (Hospitalization)
  Sender: FDA-Public Use
  Company Number: PHRM2006FR02276

PATIENT
  Age: 73 Year
  Sex: Female

DRUGS (12)
  1. VOLTAREN [Suspect]
     Indication: SCIATICA
     Dosage: 50 MG, BID
     Route: 048
     Dates: start: 20060626, end: 20060705
  2. OMEPRAZOLE [Suspect]
     Indication: SCIATICA
     Dosage: 20 MG, QD
     Route: 048
     Dates: start: 20060626, end: 20060705
  3. DI-ANTALVIC [Suspect]
     Indication: SCIATICA
     Dosage: 6 DF/DAY
     Route: 048
     Dates: start: 20060626, end: 20060705
  4. ALLOPURINOL [Suspect]
     Dosage: 200 MG, QD
     Route: 048
     Dates: start: 20060629, end: 20060705
  5. PREVISCAN [Interacting]
     Dosage: 10 MG, QD
     Route: 048
     Dates: end: 20060705
  6. LANTUS [Concomitant]
     Route: 058
  7. LEVOTHYROXINE SODIUM [Concomitant]
     Route: 048
  8. LASILIX [Concomitant]
     Dosage: 1 DF, QD
     Route: 048
  9. CORDARONE [Interacting]
     Route: 048
  10. NOVONORM [Concomitant]
     Route: 048
  11. FENOFIBRATE SANDOZ (NGX) [Suspect]
     Dosage: 1 DF, QD
     Route: 048
     Dates: start: 20060629, end: 20060705
  12. APROVEL [Concomitant]
     Dosage: 150 MG/DAY
     Route: 048
     Dates: end: 20060705

REACTIONS (4)
  - BLOOD CREATININE INCREASED [None]
  - DERMATITIS EXFOLIATIVE [None]
  - INTERNATIONAL NORMALISED RATIO INCREASED [None]
  - RENAL FAILURE [None]
